FAERS Safety Report 9980226 (Version 1)
Quarter: 2014Q1

REPORT INFORMATION
  Report Type: Report from Study
  Country: US (occurrence: US)
  Receive Date: 20140307
  Receipt Date: 20140307
  Transmission Date: 20141002
  Serious: No
  Sender: FDA-Public Use
  Company Number: US-ABBVIE-13P-163-1176120-00

PATIENT
  Sex: Female

DRUGS (5)
  1. HUMIRA [Suspect]
     Indication: CROHN^S DISEASE
     Dates: start: 20130913
  2. AZATHIOPRINE [Concomitant]
     Indication: CROHN^S DISEASE
  3. PENTASA [Concomitant]
     Indication: CROHN^S DISEASE
  4. EFFEXOR [Concomitant]
     Indication: POSTPARTUM DEPRESSION
  5. BACTRIM [Concomitant]
     Indication: PRODUCT USED FOR UNKNOWN INDICATION
     Dosage: 800/160 MG, FOR 10 DAYS

REACTIONS (1)
  - Urinary tract infection [Recovering/Resolving]
